FAERS Safety Report 14070934 (Version 1)
Quarter: 2017Q4

REPORT INFORMATION
  Report Type: Spontaneous
  Country: US (occurrence: US)
  Receive Date: 20171010
  Receipt Date: 20171010
  Transmission Date: 20180321
  Serious: No
  Sender: FDA-Public Use
  Company Number: US-JNJFOC-20170819013

PATIENT
  Sex: Female
  Weight: 53 kg

DRUGS (7)
  1. CALCIUM [Concomitant]
     Active Substance: CALCIUM
  2. ACYCLOVIR. [Concomitant]
     Active Substance: ACYCLOVIR
  3. CALCIUM CARBONATE AND VITAMIN D [Concomitant]
     Active Substance: CALCIUM CARBONATE\VITAMIN D
  4. SIMVASTATIN. [Concomitant]
     Active Substance: SIMVASTATIN
  5. IMBRUVICA [Suspect]
     Active Substance: IBRUTINIB
     Indication: MANTLE CELL LYMPHOMA
     Route: 048
     Dates: start: 20150123
  6. METOPROLOL. [Concomitant]
     Active Substance: METOPROLOL
  7. IMBRUVICA [Suspect]
     Active Substance: IBRUTINIB
     Indication: MANTLE CELL LYMPHOMA
     Route: 048
     Dates: start: 20150123

REACTIONS (2)
  - Incorrect dose administered [Unknown]
  - Off label use [Unknown]
